FAERS Safety Report 7571764-3 (Version None)
Quarter: 2011Q2

REPORT INFORMATION
  Report Type: 
  Country: None (occurrence: None)
  Receive Date: 20110624
  Receipt Date: 20110615
  Transmission Date: 20111010
  Serious: Yes (Hospitalization, Other)
  Sender: FDA-Public Use
  Company Number: BR-ASTRAZENECA-2011SE36798

PATIENT
  Age: 78 Year
  Sex: Female
  Weight: 62 kg

DRUGS (8)
  1. ATACAND HCT [Suspect]
     Indication: HYPERTENSION
     Dosage: 8/12.5 MGS HALF TABLET DAILY
     Route: 048
     Dates: start: 20050101, end: 20110301
  2. OMEPRAZOLE [Suspect]
     Indication: DYSPEPSIA
     Dosage: OD
     Route: 048
     Dates: start: 20110101
  3. SINVASCOR [Concomitant]
     Indication: HYPERCHOLESTEROLAEMIA
     Route: 048
     Dates: start: 20040101
  4. ATACAND HCT [Suspect]
     Route: 048
     Dates: start: 20110301
  5. METOPROLOL SUCCINATE [Suspect]
     Indication: HYPERTENSION
     Route: 048
     Dates: start: 20110301
  6. PLAVIX [Suspect]
     Route: 048
     Dates: start: 20080101, end: 20110301
  7. CLONAZEPAM [Concomitant]
     Indication: LABYRINTHITIS
     Route: 048
     Dates: start: 20010101
  8. LIMBITROL [Concomitant]
     Indication: DEPRESSION
     Route: 048
     Dates: start: 20010101

REACTIONS (8)
  - DYSPEPSIA [None]
  - RENAL ARTERY OCCLUSION [None]
  - CONDITION AGGRAVATED [None]
  - ARTERIAL STENT INSERTION [None]
  - BLOOD PRESSURE INADEQUATELY CONTROLLED [None]
  - DRUG INEFFECTIVE [None]
  - HEART RATE INCREASED [None]
  - INFLUENZA [None]
